FAERS Safety Report 6171254-9 (Version None)
Quarter: 2009Q2

REPORT INFORMATION
  Report Type: 
  Country: None (occurrence: None)
  Receive Date: 20090429
  Receipt Date: 20090415
  Transmission Date: 20091009
  Serious: Yes (Disabling, Other)
  Sender: FDA-Public Use
  Company Number: US-BAYER-200911198BCC

PATIENT
  Age: 72 Year
  Sex: Male
  Weight: 81 kg

DRUGS (9)
  1. ALEVE [Suspect]
     Indication: ARTHRALGIA
     Dosage: UNIT DOSE: 220 MG
     Route: 048
     Dates: end: 20081201
  2. LIPITOR [Suspect]
     Indication: BLOOD CHOLESTEROL INCREASED
     Route: 048
     Dates: end: 20090301
  3. LIPITOR [Suspect]
     Dosage: UNIT DOSE: 10 MG
     Route: 048
     Dates: start: 20000301
  4. ZETIA [Concomitant]
  5. WELCHOL [Concomitant]
     Dosage: UNIT DOSE: 625 MG
  6. ALPHAGAN [Concomitant]
  7. ACETYLSALICYLIC ACID [Concomitant]
  8. NEXIUM [Concomitant]
  9. CORTISONE [Concomitant]
     Indication: ARTHRALGIA
     Dates: start: 20081201, end: 20081201

REACTIONS (4)
  - HEADACHE [None]
  - LABILE BLOOD PRESSURE [None]
  - LOW DENSITY LIPOPROTEIN INCREASED [None]
  - NEUROPATHY PERIPHERAL [None]
